FAERS Safety Report 10288694 (Version 1)
Quarter: 2014Q3

REPORT INFORMATION
  Report Type: Spontaneous
  Country: US (occurrence: US)
  Receive Date: 20140709
  Receipt Date: 20140709
  Transmission Date: 20150326
  Serious: No
  Sender: FDA-Public Use
  Company Number: US-GILEAD-2013-0084168

PATIENT
  Sex: Male

DRUGS (1)
  1. LETAIRIS [Suspect]
     Active Substance: AMBRISENTAN
     Indication: PRODUCT USED FOR UNKNOWN INDICATION
     Dosage: 10 MG, QD
     Dates: start: 20120310

REACTIONS (6)
  - Back pain [Unknown]
  - Lethargy [Unknown]
  - Ear discomfort [Unknown]
  - Neck pain [Unknown]
  - Oedema [Unknown]
  - Dyspnoea [Unknown]
